FAERS Safety Report 5510346-1 (Version None)
Quarter: 2007Q4

REPORT INFORMATION
  Report Type: 
  Country: None (occurrence: None)
  Receive Date: 20071108
  Receipt Date: 20071029
  Transmission Date: 20080405
  Serious: Yes (Other)
  Sender: FDA-Public Use
  Company Number: US-PFIZER INC-2007066543

PATIENT
  Sex: Female
  Weight: 50 kg

DRUGS (8)
  1. LIPITOR [Suspect]
     Indication: BLOOD CHOLESTEROL
     Dates: start: 20061101, end: 20070801
  2. PREDNISONE TAB [Suspect]
     Dosage: DAILY DOSE:5MG
  3. BENICAR [Concomitant]
  4. PREVACID [Concomitant]
  5. UBIDECARENONE [Concomitant]
  6. NIACIN [Concomitant]
  7. VITAMIN CAP [Concomitant]
  8. BECOSYM FORTE [Concomitant]

REACTIONS (6)
  - ASTHENIA [None]
  - BLOOD CHOLESTEROL INCREASED [None]
  - MUSCULAR WEAKNESS [None]
  - PALPITATIONS [None]
  - SENSATION OF HEAVINESS [None]
  - VITAMIN B12 INCREASED [None]
